FAERS Safety Report 7675752-8 (Version None)
Quarter: 2011Q3

REPORT INFORMATION
  Report Type: 
  Country: None (occurrence: None)
  Receive Date: 20110810
  Receipt Date: 20110706
  Transmission Date: 20111222
  Serious: No
  Sender: FDA-Public Use
  Company Number: US-TYCO HEALTHCARE/MALLINCKRODT-T201101194

PATIENT
  Sex: Female

DRUGS (4)
  1. PENNSAID [Suspect]
     Dosage: 10 GTT, BID, LEFT KNEE
     Route: 061
     Dates: start: 20100101, end: 20110501
  2. ANXIOLYTICS [Concomitant]
     Indication: ANXIETY
     Dosage: 10 MG, UNK
  3. PENNSAID [Suspect]
     Indication: OSTEOARTHRITIS
     Dosage: 10 GTT, QID, LEFT KNEE
     Route: 061
     Dates: start: 20110501, end: 20110101
  4. DIURETICS [Concomitant]
     Indication: BLOOD PRESSURE INCREASED
     Dosage: UNK

REACTIONS (2)
  - DRUG INEFFECTIVE [None]
  - INTENTIONAL DRUG MISUSE [None]
